FAERS Safety Report 13703096 (Version 6)
Quarter: 2017Q4

REPORT INFORMATION
  Report Type: Spontaneous
  Country: US (occurrence: US)
  Receive Date: 20170629
  Receipt Date: 20171019
  Transmission Date: 20180320
  Serious: Yes (Other)
  Sender: FDA-Public Use
  Company Number: US-PFIZER INC-2017282018

PATIENT
  Age: 59 Year
  Sex: Male
  Weight: 116 kg

DRUGS (18)
  1. XELJANZ XR [Suspect]
     Active Substance: TOFACITINIB CITRATE
     Dosage: 11 MG, 1X/DAY
     Route: 048
     Dates: start: 201612, end: 20170619
  2. ANDROGEL [Concomitant]
     Active Substance: TESTOSTERONE
     Indication: BLOOD TESTOSTERONE DECREASED
     Dosage: UNK, 1X/DAY (5 PUMPS APLIED TOPICALLY IN THE MORNING)
     Route: 061
     Dates: start: 201506
  3. PREDNISONE. [Concomitant]
     Active Substance: PREDNISONE
     Indication: RHEUMATOID ARTHRITIS
     Dosage: 10 MG ALT WITH 5 MG QD X 2 WEEKS THEN 5 MG QD X 2 WEEKS THEN 5 MG QOD X 2 WEEKS THEN STOP
     Dates: start: 20160428, end: 20161110
  4. METFORMIN [Concomitant]
     Active Substance: METFORMIN HYDROCHLORIDE
     Indication: DIABETES MELLITUS
     Dosage: 500 MG, 2X/DAY
     Route: 048
     Dates: start: 201607
  5. SIMVASTATIN. [Concomitant]
     Active Substance: SIMVASTATIN
     Indication: HYPERCHOLESTEROLAEMIA
     Dosage: 20 MG, 1X/DAY
     Route: 048
     Dates: start: 2012
  6. VITAMIN C [Concomitant]
     Active Substance: ASCORBIC ACID
     Indication: SUPPLEMENTATION THERAPY
     Dosage: 1000 MG, 1X/DAY
     Route: 048
     Dates: start: 201611
  7. XELJANZ XR [Suspect]
     Active Substance: TOFACITINIB CITRATE
     Indication: RHEUMATOID ARTHRITIS
     Dosage: 11 MG, 1X/DAY
     Route: 048
     Dates: start: 201111
  8. XELJANZ XR [Suspect]
     Active Substance: TOFACITINIB CITRATE
     Dosage: 11 MG, 1X/DAY
     Route: 048
     Dates: start: 20141201
  9. HUMIRA [Concomitant]
     Active Substance: ADALIMUMAB
     Indication: RHEUMATOID ARTHRITIS
     Dosage: 40 MG, UNK(EVERY OTHER WEEK)
     Route: 058
     Dates: start: 20170908
  10. BABY ASPIRIN [Concomitant]
     Active Substance: ASPIRIN
     Dosage: 81 MG, 1X/DAY
     Route: 048
     Dates: start: 201411
  11. FISH OIL [Concomitant]
     Active Substance: FISH OIL
     Dosage: 1400 MG, 1X/DAY
     Route: 048
     Dates: start: 201611
  12. L-THYROXINE [Concomitant]
     Active Substance: LEVOTHYROXINE
     Indication: THYROID DISORDER
     Dosage: 200 MG, 1X/DAY
     Route: 048
     Dates: start: 2012
  13. ROPINIROLE. [Concomitant]
     Active Substance: ROPINIROLE
     Indication: RESTLESS LEGS SYNDROME
     Dosage: 3 MG, 1X/DAY
     Route: 048
     Dates: start: 201507
  14. XELJANZ XR [Suspect]
     Active Substance: TOFACITINIB CITRATE
     Dosage: 11 MG, 1X/DAY
     Dates: start: 20170630, end: 20170831
  15. FLUTICASONE. [Concomitant]
     Active Substance: FLUTICASONE
     Indication: NASAL CONGESTION
     Dosage: UNK, 1X/DAY (2 SPRAYS EACH NOSTRIL EVERY MORNING)
     Route: 045
     Dates: start: 201610
  16. PREDNISONE. [Concomitant]
     Active Substance: PREDNISONE
     Indication: INFLAMMATION
     Dosage: 5 MG, UNK
     Dates: start: 201611
  17. PREDNISONE. [Concomitant]
     Active Substance: PREDNISONE
     Dosage: 10 MG, 1X/DAY
     Route: 048
     Dates: start: 20170619
  18. TAMSULOSIN [Concomitant]
     Active Substance: TAMSULOSIN
     Indication: POLLAKIURIA
     Dosage: 4 MG, 2X/DAY
     Route: 048
     Dates: start: 201511

REACTIONS (3)
  - Pain in extremity [Not Recovered/Not Resolved]
  - Musculoskeletal stiffness [Not Recovered/Not Resolved]
  - Hepatic failure [Recovering/Resolving]

NARRATIVE: CASE EVENT DATE: 201608
